FAERS Safety Report 6115087-8 (Version None)
Quarter: 2009Q1

REPORT INFORMATION
  Report Type: 
  Country: None (occurrence: None)
  Receive Date: 20090313
  Receipt Date: 20090311
  Transmission Date: 20090719
  Serious: Yes (Hospitalization)
  Sender: FDA-Public Use
  Company Number: B0564460A

PATIENT
  Age: 78 Year
  Sex: Male

DRUGS (3)
  1. MELPHALAN [Suspect]
     Indication: MULTIPLE MYELOMA
  2. PREDNISONE [Suspect]
     Indication: MULTIPLE MYELOMA
  3. REVLIMID [Suspect]
     Indication: MULTIPLE MYELOMA

REACTIONS (12)
  - BLOOD BILIRUBIN INCREASED [None]
  - CHOLANGITIS [None]
  - CHOLESTASIS [None]
  - CHROMATURIA [None]
  - FAECES PALE [None]
  - FATIGUE [None]
  - HEPATIC FUNCTION ABNORMAL [None]
  - HEPATOMEGALY [None]
  - JAUNDICE [None]
  - LIGHT CHAIN DISEASE [None]
  - NAUSEA [None]
  - PRURITUS [None]
